FAERS Safety Report 23904659 (Version 1)
Quarter: 2024Q2

REPORT INFORMATION
  Report Type: Spontaneous
  Country: US (occurrence: US)
  Receive Date: 20240527
  Receipt Date: 20240527
  Transmission Date: 20240715
  Serious: No
  Sender: FDA-Public Use
  Company Number: US-MYLANLABS-2024M1044868

PATIENT
  Sex: Female

DRUGS (9)
  1. GEODON [Suspect]
     Active Substance: ZIPRASIDONE HYDROCHLORIDE\ZIPRASIDONE MESYLATE
     Indication: Major depression
     Dosage: 20 MILLIGRAM, BID
     Route: 048
  2. GEODON [Suspect]
     Active Substance: ZIPRASIDONE HYDROCHLORIDE\ZIPRASIDONE MESYLATE
     Indication: Schizophrenia
  3. GEODON [Suspect]
     Active Substance: ZIPRASIDONE HYDROCHLORIDE\ZIPRASIDONE MESYLATE
     Indication: Schizoaffective disorder
  4. GEODON [Suspect]
     Active Substance: ZIPRASIDONE HYDROCHLORIDE\ZIPRASIDONE MESYLATE
     Indication: Nicotine dependence
  5. GEODON [Suspect]
     Active Substance: ZIPRASIDONE HYDROCHLORIDE\ZIPRASIDONE MESYLATE
     Indication: Insomnia
  6. VISTARIL [Concomitant]
     Active Substance: HYDROXYZINE PAMOATE
     Dosage: 25 MILLIGRAM, BID (CAPSULE BY MOUTH TWICE A DAY)
     Route: 048
  7. PROZAC [Concomitant]
     Active Substance: FLUOXETINE HYDROCHLORIDE
     Dosage: 20 MILLIGRAM, QD (TAKE ONE CAPSULE BY MOUTH EVERY MORNING)
     Route: 048
  8. RISPERDAL [Concomitant]
     Active Substance: RISPERIDONE
     Dosage: 2 MILLIGRAM, QD (EVERY MORNING AND TWO (2) TABLETS AT BEDTIME)
     Route: 048
  9. AMBIEN [Concomitant]
     Active Substance: ZOLPIDEM TARTRATE
     Dosage: 5 MILLIGRAM, QD (AS NEEDED)
     Route: 048

REACTIONS (11)
  - Decreased appetite [Unknown]
  - Disturbance in attention [Unknown]
  - Depression [Unknown]
  - Mood swings [Unknown]
  - Delusion [Unknown]
  - Alcohol abuse [Unknown]
  - Insomnia [Unknown]
  - Dizziness [Unknown]
  - Asthenia [Unknown]
  - Drug ineffective [Unknown]
  - Off label use [Unknown]
